FAERS Safety Report 9292568 (Version 1)
Quarter: 2013Q2

REPORT INFORMATION
  Report Type: Spontaneous
  Country: GR (occurrence: GR)
  Receive Date: 20130516
  Receipt Date: 20130516
  Transmission Date: 20140414
  Serious: Yes (Other)
  Sender: FDA-Public Use
  Company Number: GR-SANOFI-AVENTIS-2013SA047261

PATIENT
  Age: 34 Year
  Sex: Male

DRUGS (2)
  1. PLAQUENIL [Suspect]
     Indication: SYSTEMIC LUPUS ERYTHEMATOSUS
     Route: 065
     Dates: start: 201302
  2. TRILEPTAL [Concomitant]
     Indication: EPILEPSY
     Dosage: DAILY DOSE: 600, 300 AND 600 (UNITS UNSPECIFIED)
     Route: 065
     Dates: start: 2003

REACTIONS (2)
  - Convulsion [Not Recovered/Not Resolved]
  - Joint dislocation [Unknown]
